FAERS Safety Report 9219604 (Version 2)
Quarter: 2013Q2

REPORT INFORMATION
  Report Type: Spontaneous
  Country: JP (occurrence: JP)
  Receive Date: 20130409
  Receipt Date: 20130418
  Transmission Date: 20140414
  Serious: Yes (Other)
  Sender: FDA-Public Use
  Company Number: JP-OTSUKA-JP-2013-10754

PATIENT
  Sex: 0

DRUGS (9)
  1. SAMSCA [Suspect]
     Indication: FLUID RETENTION
     Dosage: 7.5 MG MILLIGRAM(S), DAILY DOSE
     Route: 048
  2. SAMSCA [Suspect]
     Dosage: 7.5 MG MILLIGRAM(S), DAILY DOSE
     Route: 048
  3. SAMSCA [Suspect]
     Dosage: 15 MG MILLIGRAM(S), DAILY DOSE
     Route: 048
  4. SAMSCA [Suspect]
     Route: 048
  5. SAMSCA [Suspect]
     Dosage: 15 MG MILLIGRAM(S), DAILY DOSE
     Route: 048
  6. FUROSEMIDE [Concomitant]
     Dosage: 40 MG MILLIGRAM(S), DAILY DOSE
     Route: 065
  7. FUROSEMIDE [Concomitant]
     Route: 065
  8. DOBUTAMINE [Concomitant]
     Dosage: 5 UG/KG/MIN, DAILY DOSE
     Route: 042
  9. MILRINONE [Concomitant]
     Dosage: 0.25 UG/KG/MIN, DAILY DOSE
     Route: 042

REACTIONS (2)
  - Renal impairment [Unknown]
  - Drug ineffective [None]
